FAERS Safety Report 6029788-3 (Version None)
Quarter: 2009Q1

REPORT INFORMATION
  Report Type: 
  Country: None (occurrence: None)
  Receive Date: 20090106
  Receipt Date: 20090106
  Transmission Date: 20090719
  Serious: Yes (Disabling, Other)
  Sender: FDA-Public Use
  Company Number: None

PATIENT
  Age: 29 Year
  Sex: Male
  Weight: 90.7194 kg

DRUGS (7)
  1. AMBIEN [Suspect]
     Indication: INSOMNIA
     Dosage: VARIOUS DAILY
     Dates: start: 20031201, end: 20040801
  2. TRAZODONE HCL [Suspect]
     Indication: INSOMNIA
     Dosage: VARIOUS DAILY
     Dates: start: 20031201, end: 20040801
  3. TEMAZEPAM [Suspect]
     Indication: INSOMNIA
     Dosage: VARIOUS DAILY
     Dates: start: 20031201, end: 20040801
  4. PAXIL [Suspect]
     Indication: INSOMNIA
     Dosage: VARIOUS DAILY
     Dates: start: 20031201, end: 20040801
  5. CELEXA [Suspect]
     Indication: INSOMNIA
     Dosage: VARIOUS DAILY
     Dates: start: 20031201, end: 20040801
  6. RESTORIL [Suspect]
     Indication: INSOMNIA
     Dosage: VARIOUS DAILY
     Dates: start: 20031201, end: 20040801
  7. LEXAPRO [Suspect]
     Indication: INSOMNIA
     Dosage: VARIOUS DAILY
     Dates: start: 20031201, end: 20040801

REACTIONS (3)
  - AMNESIA [None]
  - IMPRISONMENT [None]
  - SEXUAL ABUSE [None]
